FAERS Safety Report 7376607-9 (Version None)
Quarter: 2011Q1

REPORT INFORMATION
  Report Type: 
  Country: None (occurrence: None)
  Receive Date: 20110325
  Receipt Date: 20110314
  Transmission Date: 20110831
  Serious: Yes (Hospitalization, Other)
  Sender: FDA-Public Use
  Company Number: US-CELGENEUS-163-21880-10112656

PATIENT
  Sex: Female
  Weight: 53.118 kg

DRUGS (19)
  1. HYDROCORTISONE [Concomitant]
     Dosage: 20 MILLIGRAM
     Route: 048
     Dates: start: 20100901, end: 20101203
  2. MUCINEX [Concomitant]
     Dosage: 600 MILLIGRAM
     Route: 048
     Dates: start: 20100901, end: 20101203
  3. KLOR-CON [Concomitant]
     Dosage: 4 MILLIEQUIVALENTS
     Route: 048
     Dates: start: 20100106
  4. FOLIC ACID [Concomitant]
     Dosage: 1 MILLIGRAM
     Route: 048
     Dates: start: 20100901
  5. SYNTHROID [Concomitant]
     Dosage: .088 MICROGRAM
     Route: 048
     Dates: start: 20070101
  6. REVLIMID [Suspect]
     Dosage: 15 MILLIGRAM
     Route: 048
     Dates: start: 20101030, end: 20110101
  7. REVLIMID [Suspect]
     Indication: POEMS SYNDROME
  8. REVLIMID [Suspect]
     Indication: MULTIPLE MYELOMA
  9. AMLODIPINE [Concomitant]
     Dosage: 2.5 MILLIGRAM
     Route: 048
     Dates: start: 20091024, end: 20101203
  10. ZOFRAN [Concomitant]
     Route: 048
     Dates: start: 20100106
  11. KLOR-CON [Concomitant]
     Dosage: 8 MILLIEQUIVALENTS
     Route: 048
     Dates: start: 20101203
  12. ALBUTEROL [Concomitant]
     Dosage: 2.5 MILLIGRAM
     Route: 055
     Dates: start: 20100901, end: 20101203
  13. CARVEDILOL [Concomitant]
     Dosage: 6.25 MILLIGRAM
     Route: 048
     Dates: start: 20100901
  14. FINACEN [Concomitant]
     Dosage: 15%
     Route: 061
     Dates: start: 20060101
  15. PROTONIX [Concomitant]
     Dosage: 40 MILLIGRAM
     Route: 048
     Dates: start: 20070101
  16. TORSEMIDE [Concomitant]
     Dosage: 20 MILLIGRAM
     Route: 048
     Dates: start: 20100901
  17. PREDNISONE [Concomitant]
     Dosage: 5MG/2.5
     Route: 048
     Dates: start: 20101203
  18. FECT [Concomitant]
     Route: 048
     Dates: start: 20100701, end: 20101101
  19. METROL [Concomitant]
     Dosage: 75%
     Route: 061
     Dates: start: 20010101

REACTIONS (6)
  - RENAL FAILURE ACUTE [None]
  - ANAEMIA [None]
  - DEHYDRATION [None]
  - MALAISE [None]
  - METABOLIC ACIDOSIS [None]
  - CLOSTRIDIAL INFECTION [None]
